FAERS Safety Report 8251728-7 (Version None)
Quarter: 2012Q2

REPORT INFORMATION
  Report Type: 
  Country: None (occurrence: None)
  Receive Date: 20120402
  Receipt Date: 20120326
  Transmission Date: 20120825
  Serious: Yes (Other)
  Sender: FDA-Public Use
  Company Number: US-US-EMD SERONO, INC.-7118514

PATIENT
  Sex: Female
  Weight: 67 kg

DRUGS (3)
  1. LOVENOX [Concomitant]
  2. COUMADIN [Concomitant]
     Indication: AORTIC VALVE REPLACEMENT
  3. REBIF [Suspect]
     Indication: MULTIPLE SCLEROSIS
     Route: 058
     Dates: start: 20091007

REACTIONS (1)
  - URINARY INCONTINENCE [None]
